FAERS Safety Report 23258946 (Version 2)
Quarter: 2023Q4

REPORT INFORMATION
  Report Type: Other
  Country: None (occurrence: CO)
  Receive Date: 20231204
  Receipt Date: 20231204
  Transmission Date: 20240110
  Serious: Yes (Life-Threatening, Hospitalization)
  Sender: FDA-Public Use
  Company Number: CO-B.Braun Medical Inc.-2148965

PATIENT
  Age: 4 Month
  Sex: Female
  Weight: 4.7 kg

DRUGS (21)
  1. DEXTROSE AND SODIUM CHLORIDE [Suspect]
     Active Substance: DEXTROSE MONOHYDRATE\SODIUM CHLORIDE
     Indication: Dehydration
  2. CEFTRIAXONE [Suspect]
     Active Substance: CEFTRIAXONE\CEFTRIAXONE SODIUM
  3. LACTATED RINGERS SOLUTION [Suspect]
     Active Substance: CALCIUM CHLORIDE\POTASSIUM CHLORIDE\SODIUM CHLORIDE\SODIUM LACTATE
  4. METRONIDAZOLE [Suspect]
     Active Substance: METRONIDAZOLE
  5. CEFTAZIDIME [Suspect]
     Active Substance: CEFTAZIDIME
  6. EPINEPHRINE [Suspect]
     Active Substance: EPINEPHRINE
  7. ALBUMIN HUMAN [Suspect]
     Active Substance: ALBUMIN HUMAN
  8. CALCIUM GLUCONATE [Suspect]
     Active Substance: CALCIUM GLUCONATE
  9. FENTANYL [Suspect]
     Active Substance: FENTANYL\FENTANYL CITRATE
  10. REMIFENTANIL [Suspect]
     Active Substance: REMIFENTANIL
  11. OXACILLIN [Suspect]
     Active Substance: OXACILLIN SODIUM
  12. CLINDAMYCIN [Suspect]
     Active Substance: CLINDAMYCIN
  13. CIPROFLOXACIN [Suspect]
     Active Substance: CIPROFLOXACIN
  14. CEFTAROLINE [Suspect]
     Active Substance: CEFTAROLINE
  15. MILRINONE [Suspect]
     Active Substance: MILRINONE
  16. FUROSEMIDE [Suspect]
     Active Substance: FUROSEMIDE
  17. HUMAN IMMUNOGLOBULIN G [Suspect]
     Active Substance: HUMAN IMMUNOGLOBULIN G
  18. SPIRONOLACTONE [Suspect]
     Active Substance: SPIRONOLACTONE
  19. VANCOMYCIN [Suspect]
     Active Substance: VANCOMYCIN
  20. VITAMIN K [Suspect]
     Active Substance: PHYTONADIONE
  21. NOREPINEPHRINE [Suspect]
     Active Substance: NOREPINEPHRINE

REACTIONS (1)
  - Drug ineffective [None]
